FAERS Safety Report 14435905 (Version 3)
Quarter: 2019Q3

REPORT INFORMATION
  Report Type: Spontaneous
  Country: US (occurrence: US)
  Receive Date: 20180125
  Receipt Date: 20190726
  Transmission Date: 20191004
  Serious: Yes (Hospitalization, Other)
  Sender: FDA-Public Use
  Company Number: US-ASTRAZENECA-2018SE08691

PATIENT
  Age: 23525 Day
  Sex: Male
  Weight: 127.5 kg

DRUGS (14)
  1. TAMSULOSIN [Concomitant]
     Active Substance: TAMSULOSIN
  2. TAMSULOSIN [Concomitant]
     Active Substance: TAMSULOSIN
  3. METOPROLOL. [Concomitant]
     Active Substance: METOPROLOL
  4. ATIVAN [Concomitant]
     Active Substance: LORAZEPAM
  5. KOMBIGLYZE XR [Suspect]
     Active Substance: METFORMIN HYDROCHLORIDE\SAXAGLIPTIN HYDROCHLORIDE
     Route: 048
     Dates: start: 201504, end: 201512
  6. OMEPRAZOLE. [Concomitant]
     Active Substance: OMEPRAZOLE
  7. ONGLYZA [Suspect]
     Active Substance: SAXAGLIPTIN HYDROCHLORIDE
     Indication: DIABETES MELLITUS
     Route: 048
     Dates: start: 201504, end: 201512
  8. ONGLYZA [Suspect]
     Active Substance: SAXAGLIPTIN HYDROCHLORIDE
     Indication: DIABETES MELLITUS
     Route: 048
     Dates: start: 20150407, end: 20151129
  9. MELOXICAM. [Concomitant]
     Active Substance: MELOXICAM
  10. ASPIRIN. [Concomitant]
     Active Substance: ASPIRIN
  11. FUROSEMIDE. [Concomitant]
     Active Substance: FUROSEMIDE
  12. ZOLOFT [Concomitant]
     Active Substance: SERTRALINE HYDROCHLORIDE
  13. LORAZEPAM. [Concomitant]
     Active Substance: LORAZEPAM
  14. LOVASTATIN. [Concomitant]
     Active Substance: LOVASTATIN

REACTIONS (7)
  - Cardiac failure [Unknown]
  - Cardiovascular disorder [Unknown]
  - Coronary artery disease [Unknown]
  - Cardiac dysfunction [Unknown]
  - Acute left ventricular failure [Unknown]
  - Cardiac failure congestive [Unknown]
  - Myocardial infarction [Unknown]

NARRATIVE: CASE EVENT DATE: 20150707
